FAERS Safety Report 11485401 (Version 1)
Quarter: 2015Q3

REPORT INFORMATION
  Report Type: Spontaneous
  Country: US (occurrence: US)
  Receive Date: 20150903
  Receipt Date: 20150903
  Transmission Date: 20151125
  Serious: No
  Sender: FDA-Public Use
  Company Number: US-ELI_LILLY_AND_COMPANY-US200811004454

PATIENT
  Sex: Male

DRUGS (7)
  1. HUMALOG [Suspect]
     Active Substance: INSULIN LISPRO
     Dosage: 10 U, UNK
     Dates: start: 1998
  2. HUMALOG [Suspect]
     Active Substance: INSULIN LISPRO
  3. HUMALOG [Suspect]
     Active Substance: INSULIN LISPRO
  4. HUMALOG [Suspect]
     Active Substance: INSULIN LISPRO
     Dosage: 8 U, UNK
     Dates: start: 1998
  5. HUMALOG [Suspect]
     Active Substance: INSULIN LISPRO
     Dosage: 5 U, UNK
     Dates: start: 200811, end: 200811
  6. HUMALOG [Suspect]
     Active Substance: INSULIN LISPRO
     Dosage: 6 U, UNK
     Dates: start: 1998
  7. LANTUS [Concomitant]
     Active Substance: INSULIN GLARGINE
     Dosage: 15 U, UNK

REACTIONS (1)
  - Blood glucose increased [Recovered/Resolved]

NARRATIVE: CASE EVENT DATE: 200808
